FAERS Safety Report 16787501 (Version 7)
Quarter: 2020Q2

REPORT INFORMATION
  Report Type: Spontaneous
  Country: US (occurrence: US)
  Receive Date: 20190909
  Receipt Date: 20200629
  Transmission Date: 20200713
  Serious: Yes (Hospitalization)
  Sender: FDA-Public Use
  Company Number: US-ACTELION-A-NJ2019-195230

PATIENT
  Sex: Female

DRUGS (1)
  1. OPSUMIT [Suspect]
     Active Substance: MACITENTAN
     Indication: PULMONARY ARTERIAL HYPERTENSION
     Dosage: 10 MG, QD
     Route: 048
     Dates: start: 20181121

REACTIONS (6)
  - Fluid retention [Unknown]
  - Musculoskeletal pain [Unknown]
  - Hospitalisation [Unknown]
  - Chest pain [Unknown]
  - Unevaluable event [Unknown]
  - Peripheral swelling [Unknown]
